FAERS Safety Report 26184265 (Version 1)
Quarter: 2025Q4

REPORT INFORMATION
  Report Type: Report from Study
  Country: US (occurrence: US)
  Receive Date: 20251222
  Receipt Date: 20251222
  Transmission Date: 20260118
  Serious: Yes (Other)
  Sender: JOHNSON AND JOHNSON
  Company Number: US-JNJFOC-20251217030

PATIENT
  Age: 24 Year
  Sex: Female

DRUGS (4)
  1. SPRAVATO [Suspect]
     Active Substance: ESKETAMINE
     Indication: Depression
     Dosage: ^56 MG, 1 TOTAL DOSE^
     Route: 045
     Dates: start: 20250501, end: 20250501
  2. SPRAVATO [Suspect]
     Active Substance: ESKETAMINE
     Dosage: ^84 MG, 51 TOTAL DOSES^
     Route: 045
     Dates: start: 20250505, end: 20251203
  3. ACRIVASTINE [Suspect]
     Active Substance: ACRIVASTINE
  4. DOXEPIN [Suspect]
     Active Substance: DOXEPIN

REACTIONS (2)
  - Serotonin syndrome [Unknown]
  - Contraindicated product administered [Unknown]

NARRATIVE: CASE EVENT DATE: 20250101
